FAERS Safety Report 10029322 (Version 6)
Quarter: 2016Q1

REPORT INFORMATION
  Report Type: Spontaneous
  Country: US (occurrence: US)
  Receive Date: 20140321
  Receipt Date: 20160205
  Transmission Date: 20160525
  Serious: Yes (Hospitalization, Other)
  Sender: FDA-Public Use
  Company Number: CHPA2012US011169

PATIENT
  Age: 86 Year
  Sex: Female

DRUGS (9)
  1. PREVACID [Suspect]
     Active Substance: LANSOPRAZOLE
     Dosage: EVERY 14 HOURS
     Route: 048
  2. PREVACID [Suspect]
     Active Substance: LANSOPRAZOLE
     Indication: OFF LABEL USE
     Dosage: 30 MG, QD
     Route: 048
     Dates: start: 201203
  3. ANTIHYPERTENSIVE DRUGS [Concomitant]
     Active Substance: UNSPECIFIED INGREDIENT
  4. PREVACID [Suspect]
     Active Substance: LANSOPRAZOLE
     Dosage: 2 DF, QD
     Route: 048
     Dates: end: 20150908
  5. PREVACID [Suspect]
     Active Substance: LANSOPRAZOLE
     Indication: OESOPHAGEAL DISORDER
     Dosage: UNK
     Route: 048
  6. OXYCOD//OXYTOCIN [Concomitant]
     Route: 065
  7. DRUG THERAPY NOS [Concomitant]
     Active Substance: UNSPECIFIED INGREDIENT
  8. TRAMADOL. [Concomitant]
     Active Substance: TRAMADOL
     Route: 065
  9. PREVACID [Suspect]
     Active Substance: LANSOPRAZOLE
     Indication: GASTROOESOPHAGEAL REFLUX DISEASE
     Dosage: UNK, UNK
     Route: 048
     Dates: start: 201403

REACTIONS (12)
  - Tremor [Not Recovered/Not Resolved]
  - Drug ineffective for unapproved indication [Unknown]
  - Nerve injury [Unknown]
  - Off label use [Unknown]
  - Spinal fracture [Recovering/Resolving]
  - Diarrhoea [Not Recovered/Not Resolved]
  - Incorrect drug administration duration [Not Recovered/Not Resolved]
  - Gastric disorder [Recovering/Resolving]
  - Malaise [Recovering/Resolving]
  - Chest pain [Recovering/Resolving]
  - Dysgeusia [Not Recovered/Not Resolved]
  - Pain in extremity [Recovering/Resolving]

NARRATIVE: CASE EVENT DATE: 201203
